FAERS Safety Report 4958158-1 (Version None)
Quarter: 2006Q1

REPORT INFORMATION
  Report Type: 
  Country: None (occurrence: None)
  Receive Date: 20060324
  Receipt Date: 20060314
  Transmission Date: 20060701
  Serious: Yes (Hospitalization)
  Sender: FDA-Public Use
  Company Number: 2005160177

PATIENT
  Age: 66 Year
  Sex: Female

DRUGS (2)
  1. NEURONTIN [Suspect]
     Indication: NEURALGIA
     Dosage: 3600 MG (600 MG, 6 IN 1 D), ORAL
     Route: 048
     Dates: start: 20050701
  2. INSULIN (INSULIN) [Concomitant]

REACTIONS (4)
  - CONDITION AGGRAVATED [None]
  - DIABETES MELLITUS [None]
  - MUSCLE SPASMS [None]
  - PAIN [None]
